FAERS Safety Report 19644615 (Version 1)
Quarter: 2021Q3

REPORT INFORMATION
  Report Type: Spontaneous
  Country: US (occurrence: US)
  Receive Date: 20210802
  Receipt Date: 20210802
  Transmission Date: 20211014
  Serious: Yes (Hospitalization)
  Sender: FDA-Public Use
  Company Number: US-JNJFOC-20210750683

PATIENT
  Age: 24 Year
  Sex: Male

DRUGS (1)
  1. TYLENOL EXTRA STRENGTH [Suspect]
     Active Substance: ACETAMINOPHEN
     Indication: PRODUCT USED FOR UNKNOWN INDICATION
     Dosage: EXPOSURE AMOUNT UNKNOWN
     Route: 048
     Dates: start: 202107

REACTIONS (2)
  - Intentional overdose [Unknown]
  - Suspected suicide [Unknown]

NARRATIVE: CASE EVENT DATE: 202107
